FAERS Safety Report 4444099-5 (Version None)
Quarter: 2004Q3

REPORT INFORMATION
  Report Type: 
  Country: None (occurrence: None)
  Receive Date: 20040902
  Receipt Date: 20040816
  Transmission Date: 20050211
  Serious: Yes (Death, Hospitalization, Other)
  Sender: FDA-Public Use
  Company Number: US_0408104826

PATIENT
  Sex: Female

DRUGS (6)
  1. GEMZAR [Suspect]
     Indication: NEOPLASM MALIGNANT
     Dosage: 200 MG/M2 OTHER
     Route: 050
  2. FLUOROURACIL [Concomitant]
  3. PACLITAXEL [Concomitant]
  4. RADIATION THERAPY [Concomitant]
  5. ALOE VERA [Concomitant]
  6. SODIUM CHLORIDE 0.9% [Concomitant]

REACTIONS (4)
  - FUNGAEMIA [None]
  - NEUTROPHIL COUNT ABNORMAL [None]
  - THERAPEUTIC AGENT TOXICITY [None]
  - WHITE BLOOD CELL COUNT ABNORMAL [None]
